FAERS Safety Report 13096293 (Version 1)
Quarter: 2017Q1

REPORT INFORMATION
  Report Type: Spontaneous
  Country: US (occurrence: US)
  Receive Date: 20170109
  Receipt Date: 20170109
  Transmission Date: 20170428
  Serious: No
  Sender: FDA-Public Use
  Company Number: US-JNJFOC-20161220942

PATIENT
  Age: 77 Year
  Sex: Male
  Weight: 126.98 kg

DRUGS (11)
  1. FUROSEMIDE. [Concomitant]
     Active Substance: FUROSEMIDE
  2. METOLAZONE. [Concomitant]
     Active Substance: METOLAZONE
  3. ASA [Concomitant]
     Active Substance: ASPIRIN
  4. ALLOPURINOL. [Concomitant]
     Active Substance: ALLOPURINOL
  5. TRANDOLAPRIL. [Concomitant]
     Active Substance: TRANDOLAPRIL
  6. CARVEDILOL. [Concomitant]
     Active Substance: CARVEDILOL
  7. LORATADINE. [Concomitant]
     Active Substance: LORATADINE
  8. IMBRUVICA [Suspect]
     Active Substance: IBRUTINIB
     Indication: PRODUCT USED FOR UNKNOWN INDICATION
     Route: 065
     Dates: start: 20160929, end: 2016
  9. PRAVASTATIN. [Concomitant]
     Active Substance: PRAVASTATIN
  10. RITUXAN [Concomitant]
     Active Substance: RITUXIMAB
  11. VITAMIN D [Concomitant]
     Active Substance: CHOLECALCIFEROL

REACTIONS (3)
  - Off label use [Recovered/Resolved]
  - Feeling abnormal [Unknown]
  - Incorrect dose administered [Recovered/Resolved]

NARRATIVE: CASE EVENT DATE: 2016
